FAERS Safety Report 4463722-2 (Version None)
Quarter: 2004Q3

REPORT INFORMATION
  Report Type: 
  Country: None (occurrence: None)
  Receive Date: 20040929
  Receipt Date: 20040910
  Transmission Date: 20050211
  Serious: Yes (Hospitalization)
  Sender: FDA-Public Use
  Company Number: JP_040102536

PATIENT
  Age: 68 Year
  Sex: Male
  Weight: 56 kg

DRUGS (4)
  1. GEMZAR [Suspect]
     Indication: NON-SMALL CELL LUNG CANCER
     Dosage: 1700 MG OTHER
     Dates: start: 20030910, end: 20031120
  2. AMLODIPINE BESYLATE [Concomitant]
  3. ZANTAC [Concomitant]
  4. SELBEX (TEPRENONE) [Concomitant]

REACTIONS (6)
  - COUGH [None]
  - DYSPNOEA [None]
  - HYPOXIA [None]
  - INTERSTITIAL LUNG DISEASE [None]
  - PNEUMOTHORAX [None]
  - PYREXIA [None]
